FAERS Safety Report 5501902-5 (Version None)
Quarter: 2007Q4

REPORT INFORMATION
  Report Type: 
  Country: None (occurrence: None)
  Receive Date: 20071030
  Receipt Date: 20071018
  Transmission Date: 20080405
  Serious: Yes (Other)
  Sender: FDA-Public Use
  Company Number: GB-ROCHE-527694

PATIENT
  Age: 54 Year
  Sex: Male
  Weight: 133.3 kg

DRUGS (5)
  1. XENICAL [Suspect]
     Indication: OBESITY
     Route: 048
     Dates: start: 20071013
  2. WARFARIN SODIUM [Concomitant]
     Indication: UNEVALUABLE EVENT
     Route: 048
  3. METFORMIN HCL [Concomitant]
     Route: 048
  4. INSULIN [Concomitant]
     Route: 058
  5. SIMVASTIN [Concomitant]
     Route: 048

REACTIONS (1)
  - GASTROINTESTINAL HAEMORRHAGE [None]
